FAERS Safety Report 4840787-7 (Version None)
Quarter: 2005Q4

REPORT INFORMATION
  Report Type: 
  Country: None (occurrence: None)
  Receive Date: 20051130
  Receipt Date: 20041019
  Transmission Date: 20060501
  Serious: No
  Sender: FDA-Public Use
  Company Number: US-BRISTOL-MYERS SQUIBB COMPANY-12739454

PATIENT
  Age: 2 Decade
  Sex: Male

DRUGS (1)
  1. AVALIDE [Suspect]
     Route: 048

REACTIONS (1)
  - URINARY TRACT INFECTION [None]
